FAERS Safety Report 8282234-1 (Version None)
Quarter: 2012Q2

REPORT INFORMATION
  Report Type: 
  Country: None (occurrence: None)
  Receive Date: 20120413
  Receipt Date: 20120404
  Transmission Date: 20120825
  Serious: Yes (Hospitalization)
  Sender: FDA-Public Use
  Company Number: JP-ABBOTT-11P-087-0886432-00

PATIENT
  Age: 67 Year
  Sex: Female

DRUGS (18)
  1. ATRASENTAN [Suspect]
     Indication: DIABETIC NEPHROPATHY
     Route: 048
     Dates: start: 20111006, end: 20111223
  2. METFORMIN HCL [Concomitant]
     Indication: TYPE 2 DIABETES MELLITUS
     Dates: start: 20110523, end: 20111223
  3. LOSARTAN POTASSIUM [Concomitant]
     Indication: HYPERTENSION
     Dates: start: 20060322, end: 20111223
  4. PRAVASTATIN SODIUM [Concomitant]
     Indication: HYPERLIPIDAEMIA
     Dates: start: 20091126, end: 20111223
  5. MUCODYNE [Concomitant]
     Indication: NASOPHARYNGITIS
     Dates: start: 20111208, end: 20111223
  6. XALATAN [Concomitant]
     Indication: GLAUCOMA
     Dates: start: 20050502
  7. HUMALOG [Concomitant]
     Dates: start: 20111006
  8. TRUSOPT [Concomitant]
     Indication: GLAUCOMA
     Dates: start: 20070124
  9. ASPIRIN [Concomitant]
     Indication: COAGULOPATHY
     Dates: start: 20090916, end: 20111223
  10. HUMALOG [Concomitant]
     Indication: TYPE 2 DIABETES MELLITUS
     Dates: start: 20110726, end: 20110928
  11. AMLODIPINE [Concomitant]
     Indication: HYPERTENSION
     Dates: start: 20090916, end: 20111223
  12. HYPADIL [Concomitant]
     Indication: GLAUCOMA
     Dates: start: 20060726
  13. PA [Concomitant]
     Indication: NASOPHARYNGITIS
     Dates: start: 20111205, end: 20111223
  14. WARFARIN SODIUM [Concomitant]
     Indication: PROPHYLAXIS
     Dates: start: 20090915, end: 20111223
  15. LASIX [Concomitant]
     Indication: OEDEMA PERIPHERAL
     Dates: start: 20110726, end: 20111223
  16. HUMALOG [Concomitant]
     Dates: start: 20110725
  17. HUMALOG [Concomitant]
     Dates: start: 20110929, end: 20111005
  18. HUSCODE [Concomitant]
     Indication: NASOPHARYNGITIS
     Dates: start: 20111214, end: 20111223

REACTIONS (1)
  - PULMONARY HAEMORRHAGE [None]
